FAERS Safety Report 8319015-6 (Version None)
Quarter: 2012Q2

REPORT INFORMATION
  Report Type: 
  Country: None (occurrence: None)
  Receive Date: 20120427
  Receipt Date: 20120418
  Transmission Date: 20120825
  Serious: Yes (Disabling, Other)
  Sender: FDA-Public Use
  Company Number: FR-JNJFOC-20120410049

PATIENT
  Age: 40 Year
  Sex: Male

DRUGS (6)
  1. LEPTICUR [Concomitant]
     Route: 048
  2. SULFARLEM [Concomitant]
     Route: 048
  3. PAROXETINE HYDROCHLORIDE [Concomitant]
     Route: 048
  4. RISPERDAL CONSTA [Suspect]
     Indication: DELIRIUM
     Route: 030
  5. RISPERDAL [Suspect]
     Indication: DELIRIUM
     Route: 048
  6. XANAX [Concomitant]
     Route: 048

REACTIONS (1)
  - ACCOMMODATION DISORDER [None]
